FAERS Safety Report 4631457-9 (Version None)
Quarter: 2005Q2

REPORT INFORMATION
  Report Type: 
  Country: None (occurrence: None)
  Receive Date: 20050407
  Receipt Date: 20050325
  Transmission Date: 20051028
  Serious: Yes (Hospitalization, Other)
  Sender: FDA-Public Use
  Company Number: 2005050275

PATIENT
  Age: 72 Year
  Sex: Male

DRUGS (8)
  1. CELEBREX [Suspect]
     Indication: ARTHRITIS
     Dosage: ORAL
     Route: 048
  2. ACETYLSALICYLIC ACID SRT [Suspect]
     Indication: PROPHYLAXIS
     Dosage: ORAL
     Route: 048
     Dates: start: 19990101, end: 20050101
  3. ROFECOXIB [Suspect]
     Indication: ARTHRITIS
     Dosage: ORAL
     Route: 048
  4. ATORVASTATIN CALCIUM [Concomitant]
  5. MULTIPLE VITAMINS (ASCORBIC ACID, ERGOCALCIFEROL, FOLIC ACID, RETINOL, [Concomitant]
  6. FLUCONAZOLE [Concomitant]
  7. RAMIPRIL [Concomitant]
  8. BACTRIM [Concomitant]

REACTIONS (6)
  - DIZZINESS [None]
  - FAECES DISCOLOURED [None]
  - HAEMATOCHEZIA [None]
  - HAEMOGLOBIN DECREASED [None]
  - HAEMORRHAGE [None]
  - ULCER [None]
